FAERS Safety Report 4553988-2 (Version None)
Quarter: 2005Q1

REPORT INFORMATION
  Report Type: 
  Country: None (occurrence: None)
  Receive Date: 20050118
  Receipt Date: 20050107
  Transmission Date: 20050727
  Serious: Yes (Hospitalization, Other)
  Sender: FDA-Public Use
  Company Number: PHBS2005CA00654

PATIENT
  Age: 36 Year
  Sex: Female

DRUGS (4)
  1. CES [Concomitant]
     Dosage: 0.63 MG, QD
  2. ZELNORM [Suspect]
     Indication: IRRITABLE BOWEL SYNDROME
     Dosage: 6 MG, QD
     Dates: start: 20040101
  3. ZELNORM [Suspect]
     Dosage: 3 MG, QD
     Dates: end: 20041201
  4. ZELNORM [Suspect]
     Dates: start: 20041201

REACTIONS (7)
  - ASTHENIA [None]
  - DIZZINESS [None]
  - FEELING ABNORMAL [None]
  - HEADACHE [None]
  - NERVOUSNESS [None]
  - PANIC ATTACK [None]
  - VOMITING [None]
